FAERS Safety Report 25660700 (Version 1)
Quarter: 2025Q3

REPORT INFORMATION
  Report Type: Spontaneous
  Country: US (occurrence: US)
  Receive Date: 20250808
  Receipt Date: 20250808
  Transmission Date: 20251020
  Serious: Yes (Other)
  Sender: ANI
  Company Number: US-ANIPHARMA-2024-US-067215

PATIENT
  Age: 50 Year
  Sex: Female
  Weight: 163.29 kg

DRUGS (9)
  1. CORTICOTROPIN [Suspect]
     Active Substance: CORTICOTROPIN
     Indication: Optic neuritis
     Route: 058
     Dates: start: 202412, end: 20250211
  2. OXYBUTYNIN [Concomitant]
     Active Substance: OXYBUTYNIN
  3. GABAPENTIN [Concomitant]
     Active Substance: GABAPENTIN
  4. IRON [Concomitant]
     Active Substance: IRON
  5. TRAMADOL [Concomitant]
     Active Substance: TRAMADOL
  6. ALBUTEROL [Concomitant]
     Active Substance: ALBUTEROL
  7. AZATHIOPRINE [Concomitant]
     Active Substance: AZATHIOPRINE
  8. NEXIUM [Concomitant]
     Active Substance: ESOMEPRAZOLE MAGNESIUM
  9. OMEPRAZOLE [Concomitant]
     Active Substance: OMEPRAZOLE

REACTIONS (10)
  - Headache [Not Recovered/Not Resolved]
  - Diarrhoea [Recovering/Resolving]
  - Skin burning sensation [Recovered/Resolved]
  - Contraindicated product administered [Recovered/Resolved]
  - Abdominal pain upper [Recovering/Resolving]
  - Abdominal discomfort [Recovering/Resolving]
  - Nausea [Recovering/Resolving]
  - Flatulence [Recovering/Resolving]
  - Limb discomfort [Not Recovered/Not Resolved]
  - Gastric ulcer [Unknown]

NARRATIVE: CASE EVENT DATE: 20241201
